FAERS Safety Report 8989718 (Version 3)
Quarter: 2013Q1

REPORT INFORMATION
  Report Type: Report from Study
  Country: BR (occurrence: BR)
  Receive Date: 20121228
  Receipt Date: 20130329
  Transmission Date: 20140127
  Serious: Yes (Hospitalization, Other)
  Sender: FDA-Public Use
  Company Number: BR-ABBOTT-12P-020-1027139-00

PATIENT
  Age: 56 Year
  Sex: Female
  Weight: 53 kg

DRUGS (8)
  1. HUMIRA [Suspect]
     Indication: RHEUMATOID ARTHRITIS
     Route: 058
     Dates: start: 201209, end: 201210
  2. UNKNOWN DRUG [Concomitant]
     Indication: PRODUCT USED FOR UNKNOWN INDICATION
  3. METHOTREXATE [Concomitant]
     Indication: PAIN
     Route: 048
  4. METHOTREXATE [Concomitant]
  5. PURAN T4 [Concomitant]
     Indication: THYROID DISORDER
     Route: 048
  6. RESODIC [Concomitant]
     Indication: RHEUMATIC DISORDER
     Route: 048
  7. PREDNISONE [Concomitant]
     Indication: PAIN
     Route: 048
  8. VERTIX [Concomitant]
     Indication: LABYRINTHITIS
     Route: 048

REACTIONS (9)
  - Coma [Recovered/Resolved]
  - Localised infection [Recovered/Resolved]
  - Pain in extremity [Unknown]
  - Pleuritic pain [Unknown]
  - Pigmentation disorder [Unknown]
  - Extremity necrosis [Unknown]
  - Drug ineffective [Unknown]
  - Movement disorder [Unknown]
  - Hypersensitivity [Recovered/Resolved]
